FAERS Safety Report 9960865 (Version 1)
Quarter: 2014Q1

REPORT INFORMATION
  Report Type: Report from Study
  Country: US (occurrence: US)
  Receive Date: 20140305
  Receipt Date: 20140305
  Transmission Date: 20141002
  Serious: No
  Sender: FDA-Public Use
  Company Number: US-ABBVIE-13P-163-1109477-00

PATIENT
  Age: 55 Year
  Sex: Male

DRUGS (3)
  1. HUMIRA [Suspect]
     Indication: PSORIASIS
     Route: 058
     Dates: start: 201306, end: 201306
  2. HUMIRA [Suspect]
     Route: 058
     Dates: start: 201306
  3. ATARAX [Concomitant]
     Indication: PRURITUS

REACTIONS (3)
  - Sunburn [Not Recovered/Not Resolved]
  - Drug ineffective [Not Recovered/Not Resolved]
  - Skin exfoliation [Not Recovered/Not Resolved]
